FAERS Safety Report 6868474-4 (Version None)
Quarter: 2010Q3

REPORT INFORMATION
  Report Type: 
  Country: None (occurrence: None)
  Receive Date: 20100722
  Receipt Date: 20080529
  Transmission Date: 20110219
  Serious: Yes (Hospitalization, Other)
  Sender: FDA-Public Use
  Company Number: US-PFIZER INC-2008046403

PATIENT
  Sex: Female
  Weight: 54 kg

DRUGS (4)
  1. CHANTIX [Suspect]
     Indication: EX-TOBACCO USER
     Dates: start: 20070206, end: 20070301
  2. CYMBALTA [Concomitant]
  3. XANAX [Concomitant]
  4. HYDROCODONE [Concomitant]

REACTIONS (2)
  - HEART RATE INCREASED [None]
  - SUICIDE ATTEMPT [None]
